FAERS Safety Report 13997051 (Version 1)
Quarter: 2017Q3

REPORT INFORMATION
  Report Type: Spontaneous
  Country: JP (occurrence: JP)
  Receive Date: 20170921
  Receipt Date: 20170921
  Transmission Date: 20171128
  Serious: Yes (Hospitalization, Other)
  Sender: FDA-Public Use
  Company Number: JP-MYLANLABS-2017M1058414

PATIENT
  Age: 66 Year
  Sex: Male

DRUGS (7)
  1. PREDNISOLONE MYLAN [Suspect]
     Active Substance: PREDNISOLONE
     Dosage: DECREASED BY 10 MG PER EACH WEEK
     Route: 048
  2. AMLODIPINE [Suspect]
     Active Substance: AMLODIPINE BESYLATE
     Indication: HYPERTENSION
     Dosage: UNK
     Route: 048
  3. PREDNISOLONE MYLAN [Suspect]
     Active Substance: PREDNISOLONE
     Indication: PRODUCT USED FOR UNKNOWN INDICATION
     Dosage: 60 MG, QD
     Route: 048
  4. ALLOPURINOL. [Suspect]
     Active Substance: ALLOPURINOL
     Indication: HYPERURICAEMIA
     Dosage: UNK
     Route: 048
  5. MEXITIL [Suspect]
     Active Substance: MEXILETINE HYDROCHLORIDE
     Indication: PRODUCT USED FOR UNKNOWN INDICATION
     Dosage: UNK
     Route: 048
  6. TANATRIL [Suspect]
     Active Substance: IMIDAPRIL
     Indication: HYPERTENSION
     Dosage: UNK
     Route: 048
  7. BACTRAMIN [Suspect]
     Active Substance: SULFAMETHOXAZOLE\TRIMETHOPRIM
     Indication: PNEUMOCYSTIS JIROVECII PNEUMONIA
     Dosage: UNK
     Route: 048

REACTIONS (3)
  - Stevens-Johnson syndrome [Unknown]
  - Pneumocystis jirovecii pneumonia [Unknown]
  - Drug reaction with eosinophilia and systemic symptoms [Recovering/Resolving]
